FAERS Safety Report 10447657 (Version 3)
Quarter: 2014Q3

REPORT INFORMATION
  Report Type: Report from Study
  Country: US (occurrence: US)
  Receive Date: 20140911
  Receipt Date: 20140916
  Transmission Date: 20150326
  Serious: Yes (Hospitalization)
  Sender: FDA-Public Use
  Company Number: US-PFIZER INC-2014229524

PATIENT
  Age: 66 Year
  Sex: Male
  Weight: 113.83 kg

DRUGS (25)
  1. BLINDED NAPROXEN [Suspect]
     Active Substance: NAPROXEN
     Indication: RHEUMATOID ARTHRITIS
  2. KLONOPIN [Concomitant]
     Active Substance: CLONAZEPAM
     Indication: HYPERTENSION
     Dosage: 0.5MG EVERY HOURS
     Route: 048
     Dates: start: 2009
  3. LISINOPRIL. [Concomitant]
     Active Substance: LISINOPRIL
     Indication: HYPERTENSION
     Dosage: 10 MG, 1X/DAY
     Route: 048
     Dates: start: 20140205
  4. PLACEBO [Suspect]
     Active Substance: UNSPECIFIED INGREDIENT
     Indication: OSTEOARTHRITIS
     Dosage: THREE TIMES DAILY
     Route: 048
     Dates: start: 20131225, end: 20140225
  5. LEVITRA [Concomitant]
     Active Substance: VARDENAFIL HYDROCHLORIDE TRIHYDRATE
     Indication: ERECTILE DYSFUNCTION
     Dosage: 20 MG, AS NEEDED
     Route: 048
     Dates: start: 2010
  6. BLINDED IBUPROFEN [Suspect]
     Active Substance: IBUPROFEN
     Indication: OSTEOARTHRITIS
     Dosage: THREE TIMES DAILY
     Route: 048
     Dates: start: 20131225, end: 20140225
  7. BLINDED IBUPROFEN [Suspect]
     Active Substance: IBUPROFEN
     Indication: OSTEOARTHRITIS
     Dosage: THREE TIMES DAILY
     Route: 048
     Dates: start: 20131225, end: 20140225
  8. BLINDED NAPROXEN [Suspect]
     Active Substance: NAPROXEN
     Indication: OSTEOARTHRITIS
     Dosage: THREE TIMES DAILY
     Route: 048
     Dates: start: 20131225, end: 20140225
  9. BLINDED IBUPROFEN [Suspect]
     Active Substance: IBUPROFEN
     Indication: RHEUMATOID ARTHRITIS
  10. PLACEBO [Suspect]
     Active Substance: UNSPECIFIED INGREDIENT
     Indication: RHEUMATOID ARTHRITIS
  11. KRILL OIL [Concomitant]
     Active Substance: DIETARY SUPPLEMENT
     Indication: SUPPLEMENTATION THERAPY
     Dosage: 300 MG, 1X/DAY
     Route: 048
     Dates: start: 20140403
  12. BLINDED CELECOXIB [Suspect]
     Active Substance: CELECOXIB
     Indication: RHEUMATOID ARTHRITIS
  13. BLINDED IBUPROFEN [Suspect]
     Active Substance: IBUPROFEN
     Indication: RHEUMATOID ARTHRITIS
  14. BLINDED NAPROXEN [Suspect]
     Active Substance: NAPROXEN
     Indication: RHEUMATOID ARTHRITIS
  15. ALBUTEROL. [Concomitant]
     Active Substance: ALBUTEROL
     Indication: BRONCHITIS CHRONIC
     Dosage: INHALER 1 DF PUFF EVERY 6 HOURS
     Route: 055
     Dates: start: 201311
  16. CENTRUM SILVER [Concomitant]
     Active Substance: VITAMINS
     Indication: SUPPLEMENTATION THERAPY
     Dosage: MV: 1 DF (TAB), 1X/DAY
     Route: 048
     Dates: start: 2010
  17. BLINDED IBUPROFEN [Suspect]
     Active Substance: IBUPROFEN
     Indication: OSTEOARTHRITIS
     Dosage: THREE TIMES DAILY
     Route: 048
     Dates: start: 20131225, end: 20140225
  18. BLINDED NAPROXEN [Suspect]
     Active Substance: NAPROXEN
     Indication: OSTEOARTHRITIS
     Dosage: THREE TIMES DAILY
     Route: 048
     Dates: start: 20131225, end: 20140225
  19. BLINDED CELECOXIB [Suspect]
     Active Substance: CELECOXIB
     Indication: OSTEOARTHRITIS
     Dosage: THREE TIMES DAILY
     Route: 048
     Dates: start: 20131225, end: 20140225
  20. ACETAMINOPHEN. [Concomitant]
     Active Substance: ACETAMINOPHEN
     Indication: OSTEOARTHRITIS
     Dosage: 500 MG, 1X/DAY
     Route: 048
     Dates: start: 20140319
  21. BLINDED NAPROXEN [Suspect]
     Active Substance: NAPROXEN
     Indication: OSTEOARTHRITIS
     Dosage: THREE TIMES DAILY
     Route: 048
     Dates: start: 20131225, end: 20140225
  22. BLINDED IBUPROFEN [Suspect]
     Active Substance: IBUPROFEN
     Indication: RHEUMATOID ARTHRITIS
  23. BLINDED NAPROXEN [Suspect]
     Active Substance: NAPROXEN
     Indication: RHEUMATOID ARTHRITIS
  24. NAPROXEN SODIUM. [Suspect]
     Active Substance: NAPROXEN SODIUM
     Indication: OSTEOARTHRITIS
     Dosage: 440 MG, 2X/DAY
     Route: 048
     Dates: start: 201404, end: 20140615
  25. NEXIUM [Concomitant]
     Active Substance: ESOMEPRAZOLE MAGNESIUM
     Indication: PROPHYLAXIS
     Dosage: 20 MG, 1X/DAY
     Route: 048
     Dates: start: 20131225, end: 20140225

REACTIONS (3)
  - Haematemesis [Recovered/Resolved]
  - Gastritis [Recovered/Resolved]
  - Oesophagitis [Recovered/Resolved]

NARRATIVE: CASE EVENT DATE: 20140615
